FAERS Safety Report 19364115 (Version 1)
Quarter: 2021Q2

REPORT INFORMATION
  Report Type: Spontaneous
  Country: US (occurrence: US)
  Receive Date: 20210603
  Receipt Date: 20210603
  Transmission Date: 20210717
  Serious: Yes (Hospitalization)
  Sender: FDA-Public Use
  Company Number: None

PATIENT
  Age: 73 Year
  Sex: Female
  Weight: 79 kg

DRUGS (2)
  1. FASLODEX [Suspect]
     Active Substance: FULVESTRANT
     Dates: end: 20200421
  2. PALBOCICLIB (PD?0332991) [Suspect]
     Active Substance: PALBOCICLIB
     Dates: end: 20200427

REACTIONS (15)
  - Fatigue [None]
  - Electrocardiogram ST segment abnormal [None]
  - Disease progression [None]
  - Hypophagia [None]
  - Left ventricular hypertrophy [None]
  - Dehydration [None]
  - Asthenia [None]
  - Hyponatraemia [None]
  - Nausea [None]
  - Decreased appetite [None]
  - Vomiting [None]
  - Left atrial enlargement [None]
  - Dizziness [None]
  - Blood glucose increased [None]
  - Acute kidney injury [None]

NARRATIVE: CASE EVENT DATE: 20200526
